FAERS Safety Report 10239611 (Version 3)
Quarter: 2014Q3

REPORT INFORMATION
  Report Type: Spontaneous
  Country: DE (occurrence: None)
  Receive Date: 20140612
  Receipt Date: 20140722
  Transmission Date: 20150326
  Serious: Yes (Hospitalization, Other)
  Sender: FDA-Public Use
  Company Number: AUR-APL-2014-06177

PATIENT
  Age: 47 Year
  Sex: Male

DRUGS (3)
  1. AMISULPRID [Suspect]
     Active Substance: AMISULPRIDE
     Indication: PRODUCT USED FOR UNKNOWN INDICATION
     Dosage: 200 MG, DAILY, UNKNOWN
     Dates: start: 20130125, end: 20130130
  2. OLANZAPINE. [Suspect]
     Active Substance: OLANZAPINE
     Indication: PRODUCT USED FOR UNKNOWN INDICATION
     Route: 048
     Dates: start: 20130102, end: 20130109
  3. MIRTAZAPIN (MIRTAZAPINE) [Concomitant]
     Active Substance: MIRTAZAPINE

REACTIONS (2)
  - Abdominal pain [None]
  - Hepatic steatosis [None]

NARRATIVE: CASE EVENT DATE: 20130117
